FAERS Safety Report 14800264 (Version 1)
Quarter: 2018Q2

REPORT INFORMATION
  Report Type: Spontaneous
  Country: AU (occurrence: AU)
  Receive Date: 20180424
  Receipt Date: 20180424
  Transmission Date: 20180711
  Serious: Yes (Death, Hospitalization)
  Sender: FDA-Public Use
  Company Number: AU-ACTELION-A-CH2017-157228

PATIENT
  Age: 70 Year
  Sex: Male
  Weight: 70 kg

DRUGS (6)
  1. NIFEDIPINE. [Suspect]
     Active Substance: NIFEDIPINE
     Indication: MYOCARDIAL ISCHAEMIA
     Dosage: 10 MG, TID
     Route: 048
     Dates: end: 20180117
  2. OPSUMIT [Suspect]
     Active Substance: MACITENTAN
     Indication: PULMONARY ARTERIAL HYPERTENSION
     Dosage: 10 MG, OD
     Route: 048
     Dates: start: 20150201
  3. TADALAFIL [Suspect]
     Active Substance: TADALAFIL
     Indication: PULMONARY ARTERIAL HYPERTENSION
     Dosage: 40 MG, OD
     Route: 048
     Dates: start: 20160205, end: 20180416
  4. ORDINE [Suspect]
     Active Substance: MORPHINE
     Indication: ANALGESIC THERAPY
     Dosage: 2 MG, UNK
     Route: 048
  5. FUROSEMIDE. [Concomitant]
     Active Substance: FUROSEMIDE
     Indication: FLUID OVERLOAD
     Route: 042
  6. OXYGEN. [Concomitant]
     Active Substance: OXYGEN

REACTIONS (11)
  - Oxygen saturation decreased [Not Recovered/Not Resolved]
  - Agitation [Recovered/Resolved]
  - Oedema peripheral [Recovered/Resolved]
  - Fluid retention [Recovered/Resolved]
  - Myocardial ischaemia [Recovered/Resolved]
  - Blood urea increased [Unknown]
  - Weight bearing difficulty [Recovered/Resolved]
  - Pulmonary arterial hypertension [Fatal]
  - Aggression [Recovered/Resolved]
  - Hypotension [Unknown]
  - Weight increased [Unknown]

NARRATIVE: CASE EVENT DATE: 20180409
